FAERS Safety Report 9243479 (Version 2)
Quarter: 2013Q2

REPORT INFORMATION
  Report Type: Spontaneous
  Country: US (occurrence: None)
  Receive Date: 20121123
  Receipt Date: 20130225
  Transmission Date: 20140414
  Serious: Yes (Hospitalization, Other)
  Sender: FDA-Public Use
  Company Number: 360332

PATIENT
  Age: 71 Year
  Sex: Female
  Weight: 129.3 kg

DRUGS (15)
  1. VICTOZA (LIRAGLUTIDE) SOLUTION FOR INJECTION, 6 MG/ML [Suspect]
     Indication: TYPE 2 DIABETES MELLITUS
     Route: 058
     Dates: start: 20110623, end: 201205
  2. PRAVASTATIN [Concomitant]
  3. GLIMEPIRIDE [Concomitant]
  4. AMITRIPTYLINE [Concomitant]
  5. CARDIZEM (DILTIAZEM) (UNKNOWN) (DILTIAZEM) [Concomitant]
  6. LASIX (FUROSEMIDE) [Concomitant]
  7. METOPROLOL [Concomitant]
  8. WARFARIN [Concomitant]
  9. FOLIC ACID [Concomitant]
  10. VITAMIN B12 (CYANOCOBALAMIN) [Concomitant]
  11. FLONASE (FLUTICASONE PROPIONATE) [Concomitant]
  12. MUCINEX (GUAIFENESIN) [Concomitant]
  13. TUMS (CALCIUM CARBONATE, MAGNESIUM CARBONATE, MAGNESIUM TRISILICATE) [Concomitant]
  14. LISINOPRIL [Concomitant]
  15. ALLOPURINOL [Concomitant]

REACTIONS (2)
  - Thyroid cancer [None]
  - Vomiting [None]
